FAERS Safety Report 13181608 (Version 2)
Quarter: 2017Q2

REPORT INFORMATION
  Report Type: Spontaneous
  Country: FR (occurrence: FR)
  Receive Date: 20170202
  Receipt Date: 20170411
  Transmission Date: 20170830
  Serious: Yes (Hospitalization, Other)
  Sender: FDA-Public Use
  Company Number: FR-ALEXION-A201700784

PATIENT
  Sex: Male
  Weight: 80 kg

DRUGS (1)
  1. SOLIRIS [Suspect]
     Active Substance: ECULIZUMAB
     Indication: PAROXYSMAL NOCTURNAL HAEMOGLOBINURIA
     Route: 042

REACTIONS (5)
  - Aplastic anaemia [Not Recovered/Not Resolved]
  - Laboratory test abnormal [Unknown]
  - Pancytopenia [Unknown]
  - Condition aggravated [Not Recovered/Not Resolved]
  - Blast cell proliferation [Unknown]
